FAERS Safety Report 5304978-3 (Version None)
Quarter: 2007Q2

REPORT INFORMATION
  Report Type: 
  Country: None (occurrence: None)
  Receive Date: 20070423
  Receipt Date: 20070411
  Transmission Date: 20071010
  Serious: Yes (Other)
  Sender: FDA-Public Use
  Company Number: JP-PFIZER INC-2007024427

PATIENT
  Sex: Male
  Weight: 67 kg

DRUGS (4)
  1. SOLU-CORTEF [Suspect]
     Indication: ANAPHYLAXIS PROPHYLAXIS
     Dosage: DAILY DOSE:67MG
     Route: 042
  2. SOLITA T [Suspect]
     Indication: ANAPHYLAXIS PROPHYLAXIS
     Route: 042
  3. TRANSAMIN [Concomitant]
     Route: 048
     Dates: start: 20070309, end: 20070404
  4. CIRCULETIN [Concomitant]
     Route: 048
     Dates: start: 20070309, end: 20070404

REACTIONS (4)
  - ANAPHYLACTOID REACTION [None]
  - CUTANEOUS VASCULITIS [None]
  - RASH ERYTHEMATOUS [None]
  - SWELLING [None]
